FAERS Safety Report 21471047 (Version 6)
Quarter: 2023Q2

REPORT INFORMATION
  Report Type: Spontaneous
  Country: CA (occurrence: CA)
  Receive Date: 20221018
  Receipt Date: 20230529
  Transmission Date: 20230721
  Serious: Yes (Other)
  Sender: FDA-Public Use
  Company Number: CA-CELLTRION INC.-2021CA013376

PATIENT

DRUGS (18)
  1. INFLECTRA [Suspect]
     Active Substance: INFLIXIMAB-DYYB
     Indication: Crohn^s disease
     Dosage: 300 MG, Q 0, 2 AND 6 WEEKS, THEN EVERY 8 WEEKS
     Route: 042
     Dates: start: 20210709, end: 20220812
  2. INFLECTRA [Suspect]
     Active Substance: INFLIXIMAB-DYYB
     Dosage: 5MG/KG, AT 0,2 AND 6 WEEKS
     Route: 042
     Dates: start: 20210709
  3. INFLECTRA [Suspect]
     Active Substance: INFLIXIMAB-DYYB
     Dosage: 5 MG/KG, AT 0,2 AND 6 WEEKS
     Route: 042
     Dates: start: 20210720
  4. INFLECTRA [Suspect]
     Active Substance: INFLIXIMAB-DYYB
     Dosage: 5MG/KG, AT 0,2 AND 6 WEEKS, THEN EVERY 8 WEEKS
     Route: 042
     Dates: start: 20210723
  5. INFLECTRA [Suspect]
     Active Substance: INFLIXIMAB-DYYB
     Dosage: 5MG/KG, AT 0,2 AND 6 WEEKS, THEN EVERY 8 WEEKS
     Route: 042
     Dates: start: 20210818
  6. INFLECTRA [Suspect]
     Active Substance: INFLIXIMAB-DYYB
     Dosage: 300 MG, AT 0,2 AND 6 WEEKS, THEN EVERY 8 WEEKS
     Route: 042
     Dates: start: 20211013
  7. INFLECTRA [Suspect]
     Active Substance: INFLIXIMAB-DYYB
     Dosage: 300 MG, AT 0,2 AND 6 WEEKS, THEN EVERY 8 WEEKS
     Route: 042
     Dates: start: 20211208
  8. INFLECTRA [Suspect]
     Active Substance: INFLIXIMAB-DYYB
     Dosage: 300 MG, AT 0,2 AND 6 WEEKS, THEN EVERY 8 WEEKS
     Route: 042
     Dates: start: 20220202
  9. INFLECTRA [Suspect]
     Active Substance: INFLIXIMAB-DYYB
     Dosage: 300 MG, AT 0,2 AND 6 WEEKS, THEN EVERY 8 WEEKS
     Route: 042
     Dates: start: 20220330
  10. INFLECTRA [Suspect]
     Active Substance: INFLIXIMAB-DYYB
     Dosage: 300 MG, AT 0,2 AND 6 WEEKS, THEN EVERY 8 WEEKS
     Route: 042
     Dates: start: 20220525
  11. INFLECTRA [Suspect]
     Active Substance: INFLIXIMAB-DYYB
     Dosage: 300 MG, AT 0,2 AND 6 WEEKS, THEN EVERY 8 WEEKS
     Route: 042
     Dates: start: 20220812
  12. INFLECTRA [Suspect]
     Active Substance: INFLIXIMAB-DYYB
     Dosage: 300 MG, (SUPPOSED TO RECEIVE 600 MG)
     Route: 042
     Dates: start: 20221012
  13. INFLECTRA [Suspect]
     Active Substance: INFLIXIMAB-DYYB
     Dosage: 600 MG, EVERY 8 WEEKS
     Route: 042
     Dates: start: 20221202
  14. INFLECTRA [Suspect]
     Active Substance: INFLIXIMAB-DYYB
     Dosage: 600 MG, EVERY 8 WEEKS
     Route: 042
     Dates: start: 20230130
  15. INFLECTRA [Suspect]
     Active Substance: INFLIXIMAB-DYYB
     Dosage: 600 MG, EVERY 8 WEEKS
     Route: 042
     Dates: start: 20230324
  16. INFLECTRA [Suspect]
     Active Substance: INFLIXIMAB-DYYB
     Dosage: 600 MG, EVERY 8 WEEKS
     Route: 042
     Dates: start: 20230324
  17. INFLECTRA [Suspect]
     Active Substance: INFLIXIMAB-DYYB
     Dosage: 600 MG, EVERY 8 WEEKS
     Route: 042
     Dates: start: 20230519
  18. METHOTREXATE [Concomitant]
     Active Substance: METHOTREXATE
     Dosage: 12.5 MG, WEEKLY,  ONCE WEEKLY (1DF)
     Route: 042
     Dates: start: 202105

REACTIONS (10)
  - Crohn^s disease [Unknown]
  - Drug level decreased [Unknown]
  - Therapeutic response unexpected [Unknown]
  - Arthralgia [Unknown]
  - Anaemia [Unknown]
  - Mouth ulceration [Recovered/Resolved]
  - Off label use [Unknown]
  - Intentional product use issue [Unknown]
  - Product prescribing issue [Unknown]
  - Inappropriate schedule of product administration [Unknown]

NARRATIVE: CASE EVENT DATE: 20210101
